FAERS Safety Report 19907775 (Version 1)
Quarter: 2021Q4

REPORT INFORMATION
  Report Type: Spontaneous
  Country: CN (occurrence: CN)
  Receive Date: 20211001
  Receipt Date: 20211001
  Transmission Date: 20220303
  Serious: Yes (Hospitalization)
  Sender: FDA-Public Use
  Company Number: CN-BAXTER-2021BAX026354

PATIENT
  Age: 30 Year
  Sex: Female
  Weight: 60 kg

DRUGS (4)
  1. CYCLOPHOSPHAMIDE [Suspect]
     Active Substance: CYCLOPHOSPHAMIDE
     Indication: Breast cancer stage II
     Dosage: CYCLOPHOSPHAMIDE FOR INJECTION 1G + NS 100ML; FIRST CYCLE OF CHEMOTHERAPY
     Route: 041
     Dates: start: 20191015, end: 20191015
  2. SODIUM CHLORIDE [Suspect]
     Active Substance: SODIUM CHLORIDE
     Indication: Medication dilution
     Dosage: CYCLOPHOSPHAMIDE FOR INJECTION 1G + NS 100ML; FIRST CYCLE OF CHEMOTHERAPY
     Route: 041
     Dates: start: 20191015, end: 20191015
  3. SODIUM CHLORIDE [Suspect]
     Active Substance: SODIUM CHLORIDE
     Dosage: DOCETAXEL INJECTION 130 MG + NS 250ML; FIRST CYCLE OF CHEMOTHERAPY
     Route: 041
     Dates: start: 20191015, end: 20191015
  4. DOCETAXEL [Suspect]
     Active Substance: DOCETAXEL
     Indication: Breast cancer stage II
     Dosage: DOCETAXEL INJECTION 130 MG + NS 250ML; FIRST CYCLE OF CHEMOTHERAPY
     Route: 041
     Dates: start: 20191015, end: 20191015

REACTIONS (1)
  - Myelosuppression [Recovered/Resolved]

NARRATIVE: CASE EVENT DATE: 20191020
